FAERS Safety Report 19656739 (Version 1)
Quarter: 2021Q3

REPORT INFORMATION
  Report Type: Spontaneous
  Country: US (occurrence: US)
  Receive Date: 20210802
  Receipt Date: 20210802
  Transmission Date: 20211014
  Serious: No
  Sender: FDA-Public Use
  Company Number: None

PATIENT

DRUGS (1)
  1. GAS?X [Suspect]
     Active Substance: DIMETHICONE
     Route: 048

REACTIONS (1)
  - Product barcode issue [None]
